FAERS Safety Report 7595385-1 (Version None)
Quarter: 2011Q3

REPORT INFORMATION
  Report Type: 
  Country: None (occurrence: None)
  Receive Date: 20110707
  Receipt Date: 20110704
  Transmission Date: 20111222
  Serious: Yes (Other)
  Sender: FDA-Public Use
  Company Number: DE-JNJFOC-20110609410

PATIENT
  Age: 40 Year
  Sex: Female

DRUGS (3)
  1. TAPENTADOL [Suspect]
     Indication: PRODUCT USED FOR UNKNOWN INDICATION
     Route: 048
     Dates: start: 20101215, end: 20110106
  2. MORPHINE SULFATE [Concomitant]
     Route: 065
  3. AMITRIPTYLINE HCL [Concomitant]
     Route: 065

REACTIONS (5)
  - APHASIA [None]
  - NAUSEA [None]
  - MOVEMENT DISORDER [None]
  - TREMOR [None]
  - HEADACHE [None]
